FAERS Safety Report 13877552 (Version 3)
Quarter: 2017Q3

REPORT INFORMATION
  Report Type: Spontaneous
  Country: PL (occurrence: PL)
  Receive Date: 20170817
  Receipt Date: 20170824
  Transmission Date: 20171127
  Serious: Yes (Death, Life-Threatening, Other)
  Sender: FDA-Public Use
  Company Number: PL-PFIZER INC-2017353574

PATIENT
  Age: 50 Year
  Sex: Female

DRUGS (4)
  1. CARBOPLATIN. [Suspect]
     Active Substance: CARBOPLATIN
     Dosage: 400 MG/M2, CYCLIC (3 CYCLE,  LASTING 3 H WITH 3 WEEKS BREAK BETWEEN CHEMOTHERAPY CYCLES)
     Route: 041
     Dates: start: 201303
  2. PACLITAXEL. [Concomitant]
     Active Substance: PACLITAXEL
     Dosage: 175 MG/M2, CYCLIC (3 CYCLES, LASTING 3 H WITH 3 WEEKS BREAK BETWEEN CHEMOTHERAPY CYCLES)
     Route: 041
     Dates: start: 201303, end: 201408
  3. CARBOPLATIN. [Suspect]
     Active Substance: CARBOPLATIN
     Indication: OVARIAN CANCER
     Dosage: 400 MG/M2, CYCLIC (6 CYCLES, WITH 3 WEEKS BETWEEN CYCLES)
     Route: 041
     Dates: start: 200904
  4. PACLITAXEL. [Concomitant]
     Active Substance: PACLITAXEL
     Indication: OVARIAN CANCER
     Dosage: 175 MG/M2, CYCLIC (6 CYCLES, LASTING 3 H,WITH 3 WEEKS BETWEEN CYCLES)
     Route: 041
     Dates: start: 200904

REACTIONS (1)
  - Palmar-plantar erythrodysaesthesia syndrome [Unknown]
